FAERS Safety Report 6788305-0 (Version None)
Quarter: 2010Q2

REPORT INFORMATION
  Report Type: 
  Country: None (occurrence: None)
  Receive Date: 20100623
  Receipt Date: 20080623
  Transmission Date: 20101027
  Serious: Yes (Other)
  Sender: FDA-Public Use
  Company Number: US-PFIZER INC-2008007141

PATIENT
  Age: 48 Year
  Sex: Male
  Weight: 84 kg

DRUGS (1)
  1. SUTENT [Suspect]
     Indication: RENAL CELL CARCINOMA
     Route: 048
     Dates: start: 20071004

REACTIONS (8)
  - ALOPECIA [None]
  - BLISTER [None]
  - CHANGE OF BOWEL HABIT [None]
  - DRUG INEFFECTIVE [None]
  - HYPERTENSION [None]
  - MYALGIA [None]
  - PIGMENTATION DISORDER [None]
  - RASH [None]
